FAERS Safety Report 7791953-2 (Version None)
Quarter: 2011Q4

REPORT INFORMATION
  Report Type: 
  Country: None (occurrence: None)
  Receive Date: 20111003
  Receipt Date: 20110928
  Transmission Date: 20120403
  Serious: Yes (Other)
  Sender: FDA-Public Use
  Company Number: US-PFIZER INC-2011231837

PATIENT
  Sex: Female
  Weight: 79.819 kg

DRUGS (2)
  1. CHANTIX [Suspect]
     Indication: SMOKING CESSATION THERAPY
     Dosage: 0.5 MG, 1X/DAY
     Route: 048
     Dates: start: 20110831
  2. CYMBALTA [Suspect]
     Dosage: UNK

REACTIONS (7)
  - MENTAL DISORDER [None]
  - FATIGUE [None]
  - CONSTIPATION [None]
  - ABDOMINAL PAIN [None]
  - NAUSEA [None]
  - SOMNOLENCE [None]
  - INSOMNIA [None]
